FAERS Safety Report 8257224 (Version 4)
Quarter: 2013Q1

REPORT INFORMATION
  Report Type: Spontaneous
  Country: JP (occurrence: JP)
  Receive Date: 20111121
  Receipt Date: 20130102
  Transmission Date: 20140127
  Serious: Yes (Disabling)
  Sender: FDA-Public Use
  Company Number: JP-ELI_LILLY_AND_COMPANY-JP201111004772

PATIENT
  Age: 62 Year
  Sex: Female
  Weight: 60.1 kg

DRUGS (6)
  1. EVISTA [Suspect]
     Indication: OSTEOPOROSIS
     Dosage: 60 MG, QD
     Route: 048
     Dates: start: 20110922, end: 20110929
  2. AMLODIPINE [Concomitant]
     Indication: HYPERTENSION
     Dosage: 5 MG, QD
     Route: 048
     Dates: start: 20101210
  3. ONEALFA [Concomitant]
     Indication: OSTEOPOROSIS
     Dosage: 0.5 UG, QD
     Route: 048
     Dates: start: 20101210
  4. ASPARA-CA [Concomitant]
     Indication: OSTEOPOROSIS
     Dosage: 200 MG, UNK
     Route: 048
     Dates: start: 20101210
  5. CINAL [Concomitant]
     Indication: ECZEMA
     Dosage: 1 DF, UNK
     Route: 048
     Dates: start: 20101210
  6. JUVELA N [Concomitant]
     Indication: PERIPHERAL ARTERIAL OCCLUSIVE DISEASE
     Dosage: 100 MG, QD
     Route: 048
     Dates: start: 20101210

REACTIONS (3)
  - Palpitations [Recovered/Resolved]
  - Chest pain [Recovered/Resolved]
  - Electrocardiogram abnormal [Unknown]
